FAERS Safety Report 21869426 (Version 1)
Quarter: 2023Q1

REPORT INFORMATION
  Report Type: Report from Study
  Country: US (occurrence: US)
  Receive Date: 20230117
  Receipt Date: 20230117
  Transmission Date: 20230417
  Serious: No
  Sender: FDA-Public Use
  Company Number: US-BIOVITRUM-2023US00732

PATIENT
  Sex: Male

DRUGS (5)
  1. SYNAGIS [Suspect]
     Active Substance: PALIVIZUMAB
     Indication: Respiratory syncytial virus infection
  2. NITROFURANTOIN MACROCRYST [Concomitant]
  3. POLY-VI-SOL/IRON [Concomitant]
  4. CHILDRENS TYLENOL [Concomitant]
     Active Substance: ACETAMINOPHEN
  5. VITAMIN D [Concomitant]
     Active Substance: VITAMIN D NOS

REACTIONS (1)
  - Pyrexia [Unknown]
